FAERS Safety Report 7722978-0 (Version None)
Quarter: 2011Q3

REPORT INFORMATION
  Report Type: 
  Country: None (occurrence: None)
  Receive Date: 20110901
  Receipt Date: 20110822
  Transmission Date: 20111222
  Serious: Yes (Hospitalization)
  Sender: FDA-Public Use
  Company Number: GB-BRISTOL-MYERS SQUIBB COMPANY-15988769

PATIENT
  Age: 79 Year
  Sex: Female

DRUGS (3)
  1. HEPARIN SODIUM [Suspect]
  2. WARFARIN SODIUM [Suspect]
  3. CYCLOPHOSPHAMIDE [Suspect]
     Route: 042

REACTIONS (4)
  - UPPER GASTROINTESTINAL HAEMORRHAGE [None]
  - PNEUMONIA [None]
  - PULMONARY EMBOLISM [None]
  - EPISTAXIS [None]
